FAERS Safety Report 6262052-6 (Version None)
Quarter: 2009Q3

REPORT INFORMATION
  Report Type: 
  Country: None (occurrence: None)
  Receive Date: 20090702
  Receipt Date: 20090304
  Transmission Date: 20100115
  Serious: No
  Sender: FDA-Public Use
  Company Number: 1000005052

PATIENT
  Age: 80 Year
  Sex: Female

DRUGS (10)
  1. BYSTOLIC [Suspect]
     Indication: HYPERTENSION
     Dosage: 5 MG (5 MG, 1 IN 1 D), ORAL
     Route: 048
     Dates: start: 20090201, end: 20090201
  2. INDERAL [Concomitant]
  3. HYDROCHLOROTHIAZIDE [Concomitant]
  4. DAPSONE [Concomitant]
  5. PRILOSEC [Concomitant]
  6. ALLEGRA [Concomitant]
  7. FOLIC ACID [Concomitant]
  8. ASPIRIN [Concomitant]
  9. VITAMIN B-12 [Concomitant]
  10. IRON [Concomitant]

REACTIONS (1)
  - DIARRHOEA [None]
